FAERS Safety Report 19497119 (Version 10)
Quarter: 2021Q4

REPORT INFORMATION
  Report Type: Spontaneous
  Country: RO (occurrence: RO)
  Receive Date: 20210706
  Receipt Date: 20211022
  Transmission Date: 20220303
  Serious: Yes (Hospitalization, Other)
  Sender: FDA-Public Use
  Company Number: RO-SA-SAC20210705001309

PATIENT
  Age: 45 Year
  Sex: Female

DRUGS (5)
  1. AUBAGIO [Suspect]
     Active Substance: TERIFLUNOMIDE
     Dosage: 14 MG, QD
     Route: 048
     Dates: start: 201903, end: 20210618
  2. QUETIAPINE [Concomitant]
     Active Substance: QUETIAPINE
     Indication: Bipolar disorder
     Dosage: 400 MG, QD
     Route: 048
  3. VALPROIC ACID [Concomitant]
     Active Substance: VALPROIC ACID
     Indication: Epilepsy
     Dosage: 1000 MG, QD (2X500)
     Route: 048
  4. LEVETIRACETAM [Concomitant]
     Active Substance: LEVETIRACETAM
     Indication: Epilepsy
     Dosage: 1500 MG, QD (2X750 MG QD)
     Route: 048
  5. MIRTAZAPINE [Concomitant]
     Active Substance: MIRTAZAPINE
     Indication: Magnetic resonance imaging abnormal
     Dosage: 30 MG, QD
     Route: 048
     Dates: start: 20210629

REACTIONS (17)
  - Quadriparesis [Unknown]
  - Epilepsy [Unknown]
  - Bipolar disorder [Unknown]
  - Behaviour disorder [Unknown]
  - Aggression [Recovered/Resolved]
  - Motor dysfunction [Unknown]
  - Condition aggravated [Unknown]
  - Mood altered [Unknown]
  - Quadriparesis [Unknown]
  - Multiple sclerosis [Unknown]
  - Multiple sclerosis relapse [Unknown]
  - Cognitive disorder [Unknown]
  - Confusional state [Unknown]
  - Disorientation [Unknown]
  - Ataxia [Unknown]
  - Asthenia [Unknown]
  - Bladder disorder [Unknown]

NARRATIVE: CASE EVENT DATE: 20210501
